FAERS Safety Report 11124085 (Version 1)
Quarter: 2015Q2

REPORT INFORMATION
  Report Type: Spontaneous
  Country: US (occurrence: None)
  Receive Date: 20150519
  Receipt Date: 20150519
  Transmission Date: 20150821
  Serious: Yes (Death, Life-Threatening, Hospitalization)
  Sender: FDA-Public Use
  Company Number: None

PATIENT
  Age: 71 Year
  Sex: Male
  Weight: 74.84 kg

DRUGS (11)
  1. VANCOMYCIN [Suspect]
     Active Substance: VANCOMYCIN
     Indication: STAPHYLOCOCCAL INFECTION
     Route: 042
     Dates: start: 20141120, end: 20150202
  2. NEURONTIN [Concomitant]
     Active Substance: GABAPENTIN
  3. CELEBREX [Concomitant]
     Active Substance: CELECOXIB
  4. VITAMIN B12 [Concomitant]
     Active Substance: CYANOCOBALAMIN
  5. VANCOMYCIN [Suspect]
     Active Substance: VANCOMYCIN
     Indication: POST PROCEDURAL INFECTION
     Route: 042
     Dates: start: 20141120, end: 20150202
  6. OMEPRAZOLE. [Concomitant]
     Active Substance: OMEPRAZOLE
  7. COENZYME Q10 [Concomitant]
     Active Substance: UBIDECARENONE
  8. LEVOTHYROXINE [Concomitant]
     Active Substance: LEVOTHYROXINE
  9. PROBIOTIC [Concomitant]
     Active Substance: PROBIOTICS NOS
  10. MELATONIN [Concomitant]
     Active Substance: MELATONIN
  11. TEMAZEPAM. [Concomitant]
     Active Substance: TEMAZEPAM

REACTIONS (5)
  - Blood pressure decreased [None]
  - Megacolon [None]
  - Feeling abnormal [None]
  - Haemorrhage [None]
  - Abnormal faeces [None]

NARRATIVE: CASE EVENT DATE: 20150209
